FAERS Safety Report 7891428-6 (Version None)
Quarter: 2011Q4

REPORT INFORMATION
  Report Type: 
  Country: None (occurrence: None)
  Receive Date: 20111103
  Receipt Date: 20110803
  Transmission Date: 20120403
  Serious: No
  Sender: FDA-Public Use
  Company Number: US-AMGEN-USASP2011039489

PATIENT
  Sex: Male

DRUGS (5)
  1. PREDNISONE [Concomitant]
  2. CODEINE SULFATE [Concomitant]
  3. ENBREL [Suspect]
     Indication: ANKYLOSING SPONDYLITIS
     Dosage: 25 MG, Q2WK
     Dates: start: 20030101
  4. COLCHICINE [Concomitant]
  5. NAPROXEN [Concomitant]

REACTIONS (10)
  - PARANASAL SINUS HYPERSECRETION [None]
  - PAIN [None]
  - IMPAIRED HEALING [None]
  - ANXIETY [None]
  - CONSTIPATION [None]
  - TINEA CRURIS [None]
  - HAEMORRHOIDS [None]
  - PALPITATIONS [None]
  - ARRHYTHMIA [None]
  - PANIC ATTACK [None]
